FAERS Safety Report 14099293 (Version 1)
Quarter: 2017Q4

REPORT INFORMATION
  Report Type: Spontaneous
  Country: FR (occurrence: FR)
  Receive Date: 20171017
  Receipt Date: 20171017
  Transmission Date: 20180321
  Serious: Yes (Other)
  Sender: FDA-Public Use
  Company Number: FR-PFIZER INC-2017446367

PATIENT
  Age: 87 Year
  Sex: Male

DRUGS (1)
  1. CORDARONE [Suspect]
     Active Substance: AMIODARONE HYDROCHLORIDE
     Indication: ATRIAL FIBRILLATION
     Dosage: 200 MG, (SIX TIMES A WEEK)
     Route: 065
     Dates: start: 1993

REACTIONS (2)
  - Chronotropic incompetence [Unknown]
  - Wandering pacemaker [Unknown]

NARRATIVE: CASE EVENT DATE: 201708
